FAERS Safety Report 23175452 (Version 1)
Quarter: 2023Q4

REPORT INFORMATION
  Report Type: Spontaneous
  Country: US (occurrence: US)
  Receive Date: 20231113
  Receipt Date: 20231113
  Transmission Date: 20240110
  Serious: No
  Sender: FDA-Public Use
  Company Number: US-AMGEN-USASP2023200351

PATIENT
  Sex: Female

DRUGS (3)
  1. INFLIXIMAB [Suspect]
     Active Substance: INFLIXIMAB
     Indication: Crohn^s disease
     Dosage: UNK
     Route: 065
  2. MENOSTAR [Concomitant]
     Active Substance: ESTRADIOL
     Indication: Turner^s syndrome
     Dosage: 7 MICROGRAM, Q2WK
     Route: 065
  3. MENOSTAR [Concomitant]
     Active Substance: ESTRADIOL
     Dosage: 50 UNK
     Route: 065

REACTIONS (2)
  - Therapeutic response unexpected [Unknown]
  - Primary hypogonadism [Unknown]
